FAERS Safety Report 21799183 (Version 1)
Quarter: 2022Q4

REPORT INFORMATION
  Report Type: Spontaneous
  Country: US (occurrence: None)
  Receive Date: 20221229
  Receipt Date: 20221229
  Transmission Date: 20230113
  Serious: No
  Sender: FDA-Public Use
  Company Number: None

PATIENT
  Sex: Female

DRUGS (1)
  1. PLEGRIDY [Suspect]
     Active Substance: PEGINTERFERON BETA-1A
     Indication: Multiple sclerosis
     Dosage: OTHER STRENGTH : 125MCG/.5;?OTHER FREQUENCY : Q 14DAYS;?
     Route: 058
     Dates: start: 202101

REACTIONS (1)
  - Drug ineffective [None]
